FAERS Safety Report 10637835 (Version 1)
Quarter: 2014Q4

REPORT INFORMATION
  Report Type: Spontaneous
  Country: AR (occurrence: AR)
  Receive Date: 20141208
  Receipt Date: 20141208
  Transmission Date: 20150529
  Serious: Yes (Congenital Anomaly)
  Sender: FDA-Public Use
  Company Number: AR-MYLANLABS-2014M1013022

PATIENT

DRUGS (6)
  1. AZATHIOPRINE. [Concomitant]
     Active Substance: AZATHIOPRINE
     Route: 064
  2. CALCIUM [Concomitant]
     Active Substance: CALCIUM
     Route: 064
  3. MYCOPHENOLATE MOFETIL. [Suspect]
     Active Substance: MYCOPHENOLATE MOFETIL
     Indication: OFF LABEL USE
  4. PREDNISOLONE. [Concomitant]
     Active Substance: PREDNISOLONE
     Route: 064
  5. HYDROXYCHLOROQUINE [Concomitant]
     Active Substance: HYDROXYCHLOROQUINE
     Route: 064
  6. MYCOPHENOLATE MOFETIL. [Suspect]
     Active Substance: MYCOPHENOLATE MOFETIL
     Indication: SYSTEMIC LUPUS ERYTHEMATOSUS
     Dosage: 1 G/D
     Route: 064

REACTIONS (11)
  - Microtia [Unknown]
  - Patent ductus arteriosus [Unknown]
  - Hypertelorism of orbit [Unknown]
  - Oesophageal atresia [Unknown]
  - Cleft lip and palate [Unknown]
  - Iris coloboma [Unknown]
  - Foetal exposure during pregnancy [Unknown]
  - Choroidal coloboma [Unknown]
  - Spine malformation [Unknown]
  - Anomaly of external ear congenital [Unknown]
  - Retinal coloboma [Unknown]
